FAERS Safety Report 14719857 (Version 1)
Quarter: 2018Q2

REPORT INFORMATION
  Report Type: Spontaneous
  Country: FR (occurrence: FR)
  Receive Date: 20180405
  Receipt Date: 20180405
  Transmission Date: 20180711
  Serious: Yes (Other)
  Sender: FDA-Public Use
  Company Number: FR-CIPLA LTD.-2018FR13627

PATIENT

DRUGS (1)
  1. ZOLEDRONIC ACID [Suspect]
     Active Substance: ZOLEDRONIC ACID
     Indication: POEMS SYNDROME
     Dosage: 1 DF, IN TOTAL
     Route: 041
     Dates: start: 20180131

REACTIONS (2)
  - Visual impairment [Recovered/Resolved]
  - Parophthalmia [Recovered/Resolved]

NARRATIVE: CASE EVENT DATE: 20180131
